FAERS Safety Report 14175157 (Version 1)
Quarter: 2017Q4

REPORT INFORMATION
  Report Type: Spontaneous
  Country: US (occurrence: US)
  Receive Date: 20171109
  Receipt Date: 20171109
  Transmission Date: 20180321
  Serious: Yes (Hospitalization, Other)
  Sender: FDA-Public Use
  Company Number: US-BAYER-2017-214050

PATIENT
  Age: 77 Year
  Sex: Female

DRUGS (1)
  1. ACETYLSALICYLIC ACID({=100 MG) [Suspect]
     Active Substance: ASPIRIN
     Dosage: UNK, QD

REACTIONS (4)
  - Confusional state [Recovered/Resolved]
  - Fall [None]
  - Subdural haematoma [Recovered/Resolved]
  - Headache [None]
